FAERS Safety Report 9970967 (Version 1)
Quarter: 2014Q1

REPORT INFORMATION
  Report Type: Spontaneous
  Country: US (occurrence: US)
  Receive Date: 20140306
  Receipt Date: 20140306
  Transmission Date: 20141002
  Serious: No
  Sender: FDA-Public Use
  Company Number: US-ABBVIE-13P-163-1153326-00

PATIENT
  Age: 69 Year
  Sex: Female
  Weight: 73.55 kg

DRUGS (5)
  1. HUMIRA [Suspect]
     Indication: CROHN^S DISEASE
     Dates: start: 201305
  2. LIALDA [Concomitant]
     Indication: CROHN^S DISEASE
  3. ENALAPRIL [Concomitant]
     Indication: HYPERTENSION
  4. COMBIGAN [Concomitant]
     Indication: PROPHYLAXIS
  5. ALENDRONATE [Concomitant]
     Indication: OSTEOPOROSIS

REACTIONS (5)
  - Wrong technique in drug usage process [Not Recovered/Not Resolved]
  - Incorrect dose administered [Not Recovered/Not Resolved]
  - Incorrect route of drug administration [Not Recovered/Not Resolved]
  - Injection site haemorrhage [Recovered/Resolved]
  - Injection site pain [Not Recovered/Not Resolved]
